FAERS Safety Report 19791109 (Version 1)
Quarter: 2021Q3

REPORT INFORMATION
  Report Type: Spontaneous
  Country: CN (occurrence: CN)
  Receive Date: 20210906
  Receipt Date: 20210906
  Transmission Date: 20211014
  Serious: Yes (Life-Threatening, Hospitalization, Other)
  Sender: FDA-Public Use
  Company Number: CN-GRANULES-CN-2021GRALIT00473

PATIENT
  Age: 25 Year
  Sex: Female

DRUGS (7)
  1. ACETAMINOPHEN. [Suspect]
     Active Substance: ACETAMINOPHEN
     Indication: PRODUCT USED FOR UNKNOWN INDICATION
     Dosage: MORE THAN 20 TABLETS
     Route: 065
  2. ETANERCEPT [Interacting]
     Active Substance: ETANERCEPT
     Route: 065
  3. IMMUNOGLOBULIN G HUMAN [Interacting]
     Active Substance: HUMAN IMMUNOGLOBULIN G
     Indication: SUPPORTIVE CARE
     Route: 065
  4. ETANERCEPT [Interacting]
     Active Substance: ETANERCEPT
     Indication: SUPPORTIVE CARE
     Route: 065
  5. METHYLPREDNISOLONE. [Interacting]
     Active Substance: METHYLPREDNISOLONE
     Indication: SUPPORTIVE CARE
     Route: 065
  6. GLUTATHIONE [Interacting]
     Active Substance: GLUTATHIONE
     Indication: SUPPORTIVE CARE
     Route: 065
  7. PHOSPHOLIPIDS [Interacting]
     Active Substance: OMEGA-3 FATTY ACIDS
     Indication: SUPPORTIVE CARE
     Route: 065

REACTIONS (3)
  - Toxicity to various agents [Recovering/Resolving]
  - Liver injury [Recovering/Resolving]
  - Intentional overdose [Recovering/Resolving]
